FAERS Safety Report 18502199 (Version 1)
Quarter: 2020Q4

REPORT INFORMATION
  Report Type: Spontaneous
  Country: JP (occurrence: JP)
  Receive Date: 20201113
  Receipt Date: 20201113
  Transmission Date: 20210114
  Serious: Yes (Other)
  Sender: FDA-Public Use
  Company Number: JP-PFIZER INC-2020443911

PATIENT
  Age: 85 Year
  Sex: Male

DRUGS (1)
  1. SALAZOPYRIN [Suspect]
     Active Substance: SULFASALAZINE
     Indication: RHEUMATOID ARTHRITIS
     Dosage: UNK

REACTIONS (3)
  - Enterocolitis [Unknown]
  - Off label use [Unknown]
  - Product use in unapproved indication [Unknown]
